FAERS Safety Report 5214137-0 (Version None)
Quarter: 2007Q1

REPORT INFORMATION
  Report Type: 
  Country: None (occurrence: None)
  Receive Date: 20070122
  Receipt Date: 20070115
  Transmission Date: 20070707
  Serious: Yes (Death, Hospitalization)
  Sender: FDA-Public Use
  Company Number: PHHO2007BR01212

PATIENT
  Age: 37 Year
  Sex: Male

DRUGS (2)
  1. ZELMAC / HTF 919A [Suspect]
     Dosage: UNK, BID
     Route: 048
  2. INSULIN [Concomitant]
     Indication: DIABETES MELLITUS INSULIN-DEPENDENT

REACTIONS (4)
  - BLOOD PRESSURE DECREASED [None]
  - FEELING ABNORMAL [None]
  - HYPERGLYCAEMIA [None]
  - LIVER DISORDER [None]
